FAERS Safety Report 10780998 (Version 1)
Quarter: 2015Q1

REPORT INFORMATION
  Report Type: Spontaneous
  Country: US (occurrence: US)
  Receive Date: 20150210
  Receipt Date: 20150210
  Transmission Date: 20150721
  Serious: No
  Sender: FDA-Public Use
  Company Number: US-GLAXOSMITHKLINE-A1056346A

PATIENT

DRUGS (2)
  1. NICODERM CQ [Suspect]
     Active Substance: NICOTINE
  2. NICORETTE [Suspect]
     Active Substance: NICOTINE

REACTIONS (7)
  - Dermatitis contact [Unknown]
  - Application site rash [Unknown]
  - Application site erythema [Unknown]
  - Gingival disorder [Unknown]
  - Nicotine dependence [Unknown]
  - Application site vesicles [Unknown]
  - Hypersensitivity [Unknown]
